FAERS Safety Report 18990182 (Version 5)
Quarter: 2021Q3

REPORT INFORMATION
  Report Type: Report from Study
  Country: JP (occurrence: JP)
  Receive Date: 20210310
  Receipt Date: 20210730
  Transmission Date: 20211014
  Serious: Yes (Hospitalization, Other)
  Sender: FDA-Public Use
  Company Number: JP-ALXN-A202102896AA

PATIENT
  Age: 5 Day
  Sex: Female

DRUGS (1)
  1. STRENSIQ [Suspect]
     Active Substance: ASFOTASE ALFA
     Indication: HYPOPHOSPHATASIA
     Dosage: 2 MG/KG, TIW
     Route: 058
     Dates: start: 20210224

REACTIONS (8)
  - Pulmonary hypertension [Recovering/Resolving]
  - Vomiting [Recovered/Resolved]
  - Cerebral ventricle dilatation [Not Recovered/Not Resolved]
  - Bronchopulmonary dysplasia [Unknown]
  - Pneumonia aspiration [Recovered/Resolved]
  - Exophthalmos [Not Recovered/Not Resolved]
  - Hypocalcaemia [Unknown]
  - Respiratory failure [Unknown]

NARRATIVE: CASE EVENT DATE: 20210301
